FAERS Safety Report 13615111 (Version 1)
Quarter: 2017Q2

REPORT INFORMATION
  Report Type: Report from Study
  Country: US (occurrence: US)
  Receive Date: 20170606
  Receipt Date: 20170606
  Transmission Date: 20170830
  Serious: Yes (Death)
  Sender: FDA-Public Use
  Company Number: US-BION-006348

PATIENT
  Age: 21 Year
  Sex: Male

DRUGS (1)
  1. LOPERAMIDE UNKNOWN PRODUCT [Suspect]
     Active Substance: LOPERAMIDE

REACTIONS (2)
  - Intentional product misuse [Fatal]
  - Neurotoxicity [Fatal]
